FAERS Safety Report 20866915 (Version 1)
Quarter: 2022Q2

REPORT INFORMATION
  Report Type: Spontaneous
  Country: US (occurrence: None)
  Receive Date: 20220523
  Receipt Date: 20220523
  Transmission Date: 20220720
  Serious: Yes (Other)
  Sender: FDA-Public Use
  Company Number: None

PATIENT
  Age: 23 Year
  Sex: Female
  Weight: 103.4 kg

DRUGS (1)
  1. PENICILLIN G BENZATHINE [Suspect]
     Active Substance: PENICILLIN G BENZATHINE
     Indication: Syphilis
     Dosage: OTHER FREQUENCY : WEEKLY X3 WEEKS;?
     Route: 030
     Dates: start: 20220502, end: 20220509

REACTIONS (2)
  - Injection site abscess [None]
  - Injection related reaction [None]

NARRATIVE: CASE EVENT DATE: 20220502
